FAERS Safety Report 21166621 (Version 2)
Quarter: 2022Q3

REPORT INFORMATION
  Report Type: Spontaneous
  Country: AT (occurrence: AT)
  Receive Date: 20220803
  Receipt Date: 20220822
  Transmission Date: 20221027
  Serious: Yes (Hospitalization)
  Sender: FDA-Public Use
  Company Number: AT-ROCHE-2969057

PATIENT
  Age: 71 Year
  Sex: Female
  Weight: 56.5 kg

DRUGS (9)
  1. TRASTUZUMAB [Suspect]
     Active Substance: TRASTUZUMAB
     Indication: Breast cancer
     Dosage: UNK
     Route: 041
     Dates: start: 20210505, end: 20211104
  2. TRASTUZUMAB [Suspect]
     Active Substance: TRASTUZUMAB
     Indication: HER2 positive breast cancer
     Dosage: LAST DOSE BEFORE EVENT ON 04NOV2021 TOTAL DOSE OF LAST ADMINISTRATION BEFORE SAE ONSET 350
     Route: 041
     Dates: start: 20210520, end: 20220126
  3. TRASTUZUMAB [Suspect]
     Active Substance: TRASTUZUMAB
     Dosage: LAST DOSE BEFORE EVENT ON 26JAN2022 TOTAL DOSE OF LAST ADMINISTRATION BEFORE SAE ONSET 350MG
     Route: 042
     Dates: start: 20210520, end: 20220126
  4. PERTUZUMAB [Suspect]
     Active Substance: PERTUZUMAB
     Indication: Breast cancer
     Dosage: 720 MG
     Route: 042
     Dates: start: 20210505, end: 20211104
  5. PERTUZUMAB [Suspect]
     Active Substance: PERTUZUMAB
     Indication: HER2 positive breast cancer
     Dosage: LAST DOSE BEFORE EVENT ON 04NOV2021 TOTAL DOSE OF LAST ADMINISTRATION BEFORE SAE ONSET: 420MG
     Route: 042
     Dates: start: 20210520, end: 20220126
  6. PERTUZUMAB [Suspect]
     Active Substance: PERTUZUMAB
     Dosage: LAST DOSE BEFORE EVENT ON 26JAN2022 TOTAL DOSE OF LAST ADMINISTRATION BEFORE SAE ONSET: 420MG
     Route: 042
     Dates: start: 20210520, end: 20220126
  7. ATEZOLIZUMAB [Suspect]
     Active Substance: ATEZOLIZUMAB
     Indication: Breast cancer
     Dosage: 1200 MG
     Route: 041
     Dates: start: 20210505, end: 20211104
  8. ATEZOLIZUMAB [Suspect]
     Active Substance: ATEZOLIZUMAB
     Indication: HER2 positive breast cancer
     Dosage: LAST DOSE BEFORE EVENT ON 04NOV2021 TOTAL DOSE OF LAST ADMINISTRATION BEFORE SAE ONSET 1200
     Route: 041
     Dates: start: 20210520, end: 20220126
  9. ATEZOLIZUMAB [Suspect]
     Active Substance: ATEZOLIZUMAB
     Dosage: LAST DOSE BEFORE EVENT ON 26JAN2022 TOTAL DOSE OF LAST ADMINISTRATION BEFORE SAE ONSET 1200MG
     Route: 042
     Dates: start: 20210520, end: 20220126

REACTIONS (4)
  - Gastritis [Recovered/Resolved]
  - Ejection fraction abnormal [Recovered/Resolved]
  - Left ventricular dysfunction [Not Recovered/Not Resolved]
  - Ejection fraction decreased [Recovered/Resolved]

NARRATIVE: CASE EVENT DATE: 20211125
